FAERS Safety Report 4364045-2 (Version None)
Quarter: 2004Q2

REPORT INFORMATION
  Report Type: 
  Country: None (occurrence: None)
  Receive Date: 20040519
  Receipt Date: 20040510
  Transmission Date: 20050107
  Serious: Yes (Other)
  Sender: FDA-Public Use
  Company Number: A-CH2004-06138

PATIENT
  Age: 9 Year
  Sex: Male
  Weight: 22 kg

DRUGS (5)
  1. TRACLEER [Suspect]
     Indication: PULMONARY HYPERTENSION
     Dosage: SEE IMAGE
     Route: 048
     Dates: end: 20031118
  2. TRACLEER [Suspect]
     Indication: PULMONARY HYPERTENSION
     Dosage: SEE IMAGE
     Route: 048
     Dates: start: 20031119, end: 20040320
  3. TRACLEER [Suspect]
     Indication: PULMONARY HYPERTENSION
     Dosage: SEE IMAGE
     Route: 048
     Dates: start: 20040321, end: 20040503
  4. TRACLEER [Suspect]
     Indication: PULMONARY HYPERTENSION
     Dosage: SEE IMAGE
     Route: 048
     Dates: start: 20040504
  5. CAPTOPRIL [Concomitant]

REACTIONS (13)
  - CYANOSIS [None]
  - EXERCISE CAPACITY DECREASED [None]
  - FATIGUE [None]
  - HYPOPNOEA [None]
  - HYPOXIA [None]
  - LUNG DISORDER [None]
  - NASAL CONGESTION [None]
  - OXYGEN SATURATION DECREASED [None]
  - PERFORMANCE STATUS DECREASED [None]
  - SLEEP APNOEA SYNDROME [None]
  - SNORING [None]
  - VASCULAR SHUNT [None]
  - VASODILATATION [None]
